FAERS Safety Report 17779414 (Version 2)
Quarter: 2020Q3

REPORT INFORMATION
  Report Type: Spontaneous
  Country: US (occurrence: US)
  Receive Date: 20200513
  Receipt Date: 20200723
  Transmission Date: 20201102
  Serious: Yes (Other)
  Sender: FDA-Public Use
  Company Number: US-LEXICON PHARMACEUTICALS, INC-20-1606-00353

PATIENT
  Age: 67 Year
  Sex: Male

DRUGS (2)
  1. LANREOTIDE [Concomitant]
     Active Substance: LANREOTIDE
  2. XERMELO [Suspect]
     Active Substance: TELOTRISTAT ETHYL
     Indication: CARCINOID SYNDROME
     Dates: start: 20190610

REACTIONS (6)
  - Product dose omission issue [Recovered/Resolved]
  - Off label use [Not Recovered/Not Resolved]
  - Hot flush [Unknown]
  - Disease progression [Unknown]
  - Heart valve incompetence [Unknown]
  - Cardiac valve disease [Unknown]
